FAERS Safety Report 13747326 (Version 2)
Quarter: 2018Q2

REPORT INFORMATION
  Report Type: Spontaneous
  Country: JP (occurrence: JP)
  Receive Date: 20170712
  Receipt Date: 20180522
  Transmission Date: 20180711
  Serious: Yes (Death)
  Sender: FDA-Public Use
  Company Number: JP-BAYER-2017-074867

PATIENT
  Age: 75 Year
  Sex: Male

DRUGS (6)
  1. XOFIGO [Suspect]
     Active Substance: RADIUM RA-223 DICHLORIDE
     Indication: HORMONE-REFRACTORY PROSTATE CANCER
     Dosage: 2.2 MBQ, Q1MON
     Route: 042
     Dates: start: 20161122
  2. XOFIGO [Suspect]
     Active Substance: RADIUM RA-223 DICHLORIDE
     Indication: HORMONE-REFRACTORY PROSTATE CANCER
     Dosage: 2.2 MBQ, Q1MON
     Route: 042
     Dates: start: 20170117
  3. XOFIGO [Suspect]
     Active Substance: RADIUM RA-223 DICHLORIDE
     Indication: HORMONE-REFRACTORY PROSTATE CANCER
     Dosage: 2.2 MBQ, Q1MON
     Route: 042
     Dates: start: 20161220
  4. XOFIGO [Suspect]
     Active Substance: RADIUM RA-223 DICHLORIDE
     Indication: HORMONE-REFRACTORY PROSTATE CANCER
     Dosage: 2.2 MBQ, Q1MON
     Route: 042
     Dates: start: 20161025
  5. XOFIGO [Suspect]
     Active Substance: RADIUM RA-223 DICHLORIDE
     Indication: HORMONE-REFRACTORY PROSTATE CANCER
     Dosage: 2.2 MBQ, Q1MON
     Route: 042
     Dates: start: 20160830
  6. XOFIGO [Suspect]
     Active Substance: RADIUM RA-223 DICHLORIDE
     Indication: METASTASES TO BONE
     Dosage: 2.2 MBQ, Q1MON
     Route: 042
     Dates: start: 20160927

REACTIONS (7)
  - Fatigue [Recovered/Resolved]
  - Blood alkaline phosphatase increased [Unknown]
  - Constipation [Recovered/Resolved]
  - Hormone-refractory prostate cancer [Fatal]
  - Oedema peripheral [Recovered/Resolved]
  - Anaemia [Recovered/Resolved]
  - Bone pain [Recovered/Resolved]

NARRATIVE: CASE EVENT DATE: 201609
